FAERS Safety Report 12570758 (Version 1)
Quarter: 2016Q3

REPORT INFORMATION
  Report Type: Spontaneous
  Country: US (occurrence: US)
  Receive Date: 20160719
  Receipt Date: 20160719
  Transmission Date: 20161109
  Serious: No
  Sender: FDA-Public Use
  Company Number: US-AMGEN-USASP2016060243

PATIENT
  Age: 63 Year
  Sex: Female

DRUGS (1)
  1. CORLANOR [Suspect]
     Active Substance: IVABRADINE HYDROCHLORIDE
     Indication: POSTURAL ORTHOSTATIC TACHYCARDIA SYNDROME
     Dosage: 2.5 MG, QD
     Route: 065
     Dates: start: 201604

REACTIONS (6)
  - Off label use [Unknown]
  - Burning sensation [Unknown]
  - Pruritus [Not Recovered/Not Resolved]
  - Pain [Not Recovered/Not Resolved]
  - Hypersensitivity [Unknown]
  - Anxiety [Unknown]

NARRATIVE: CASE EVENT DATE: 2016
